FAERS Safety Report 10877276 (Version 1)
Quarter: 2015Q1

REPORT INFORMATION
  Report Type: Spontaneous
  Country: AT (occurrence: AT)
  Receive Date: 20150302
  Receipt Date: 20150302
  Transmission Date: 20150721
  Serious: Yes (Other)
  Sender: FDA-Public Use
  Company Number: AT-TEVA-544134ISR

PATIENT
  Age: 55 Year
  Sex: Male

DRUGS (2)
  1. PANTOPRAZOL RATIOPHARM GMBH 40 MG MAGENSAFTRESISTENTE TABLETTEN [Suspect]
     Active Substance: PANTOPRAZOLE SODIUM
     Dosage: 80 MILLIGRAM DAILY;
  2. PANTOPRAZOL RATIOPHARM GMBH 40 MG MAGENSAFTRESISTENTE TABLETTEN [Suspect]
     Active Substance: PANTOPRAZOLE SODIUM
     Dosage: 40 MILLIGRAM DAILY;

REACTIONS (2)
  - Ophthalmoplegia [Recovered/Resolved]
  - Diplopia [Recovered/Resolved]
